FAERS Safety Report 4363450-8 (Version None)
Quarter: 2004Q2

REPORT INFORMATION
  Report Type: 
  Country: None (occurrence: None)
  Receive Date: 20040524
  Receipt Date: 20040514
  Transmission Date: 20050107
  Serious: Yes (Life-Threatening)
  Sender: FDA-Public Use
  Company Number: GB-MERCK-0405GBR00124

PATIENT
  Age: 61 Year
  Sex: Female
  Weight: 105 kg

DRUGS (3)
  1. DIHYDROCODEINE [Concomitant]
     Indication: PAIN
     Route: 048
  2. LEVOTHYROXINE SODIUM [Concomitant]
     Indication: HYPOTHYROIDISM
     Route: 048
  3. VIOXX [Suspect]
     Indication: RHEUMATOID ARTHRITIS
     Route: 048
     Dates: start: 20020301, end: 20040315

REACTIONS (2)
  - SKIN ULCER [None]
  - VASCULITIC RASH [None]
